FAERS Safety Report 6449096-6 (Version None)
Quarter: 2009Q4

REPORT INFORMATION
  Report Type: 
  Country: None (occurrence: None)
  Receive Date: 20091120
  Receipt Date: 20091110
  Transmission Date: 20100525
  Serious: Yes (Other)
  Sender: FDA-Public Use
  Company Number: IL-JNJFOC-20091103941

PATIENT

DRUGS (1)
  1. DOXIL [Suspect]
     Indication: SARCOMA
     Route: 042

REACTIONS (2)
  - OESOPHAGEAL ULCER [None]
  - OFF LABEL USE [None]
